FAERS Safety Report 15945174 (Version 1)
Quarter: 2019Q1

REPORT INFORMATION
  Report Type: Spontaneous
  Country: JP (occurrence: JP)
  Receive Date: 20190211
  Receipt Date: 20190211
  Transmission Date: 20190417
  Serious: Yes (Hospitalization, Other)
  Sender: FDA-Public Use
  Company Number: JP-SA-2019SA035975

PATIENT
  Age: 28 Year
  Sex: Male

DRUGS (6)
  1. DIPHENHYDRAMINE. [Suspect]
     Active Substance: DIPHENHYDRAMINE
     Indication: SUICIDE ATTEMPT
     Dosage: 25 MG, 1X
     Route: 048
  2. INSULIN ASPART [Concomitant]
     Active Substance: INSULIN ASPART
     Indication: TYPE 1 DIABETES MELLITUS
     Dosage: 7-8 UNITS IN MORNING
  3. INSULIN ASPART [Concomitant]
     Active Substance: INSULIN ASPART
     Dosage: 13-15 UNITS OFINSULIN ASPART IN THE EVENING
  4. INSULIN DEGLUDEC [Concomitant]
     Active Substance: INSULIN DEGLUDEC
     Indication: TYPE 1 DIABETES MELLITUS
     Dosage: 24 UNITS
  5. CLOTIAZEPAM [Suspect]
     Active Substance: CLOTIAZEPAM
     Indication: SUICIDE ATTEMPT
     Dosage: 5 MG, 1X
     Route: 048
  6. INSULIN ASPART [Concomitant]
     Active Substance: INSULIN ASPART
     Dosage: 6-8 UNITS OF INSULIN ASPART AT MIDDAY

REACTIONS (25)
  - Loss of consciousness [Recovering/Resolving]
  - Hyperglycaemia [Recovering/Resolving]
  - Brain hypoxia [Unknown]
  - Coma [Recovering/Resolving]
  - Renal impairment [Recovering/Resolving]
  - Hypovolaemia [Recovering/Resolving]
  - Respiratory rate decreased [Unknown]
  - Vomiting [Recovering/Resolving]
  - Mental status changes [Recovering/Resolving]
  - Respiratory failure [Unknown]
  - Brain injury [Unknown]
  - Brain stem ischaemia [Unknown]
  - Pneumonia aspiration [Unknown]
  - Hyperkalaemia [Recovering/Resolving]
  - Diabetic ketoacidosis [Recovering/Resolving]
  - Nausea [Recovering/Resolving]
  - Obstructive airways disorder [Unknown]
  - Metabolic acidosis [Recovering/Resolving]
  - Dehydration [Recovering/Resolving]
  - Decubitus ulcer [Unknown]
  - Hypovolaemic shock [Unknown]
  - Overdose [Recovering/Resolving]
  - Hypernatraemia [Recovering/Resolving]
  - Rhabdomyolysis [Unknown]
  - Hypoxia [Unknown]
